FAERS Safety Report 6227301-9 (Version None)
Quarter: 2009Q2

REPORT INFORMATION
  Report Type: 
  Country: None (occurrence: None)
  Receive Date: 20090610
  Receipt Date: 20090528
  Transmission Date: 20091009
  Serious: Yes (Other)
  Sender: FDA-Public Use
  Company Number: THQ2009A02944

PATIENT
  Sex: Male

DRUGS (3)
  1. ACTOS [Suspect]
     Indication: TYPE 2 DIABETES MELLITUS
     Dosage: PER ORAL
     Route: 048
  2. METFORMIN HCL [Concomitant]
  3. PLAVIX [Concomitant]

REACTIONS (3)
  - BLINDNESS UNILATERAL [None]
  - PRODUCT QUALITY ISSUE [None]
  - TOE AMPUTATION [None]
